FAERS Safety Report 14741724 (Version 1)
Quarter: 2018Q2

REPORT INFORMATION
  Report Type: Spontaneous
  Country: US (occurrence: US)
  Receive Date: 20180405
  Receipt Date: 20180405
  Transmission Date: 20180711
  Serious: Yes (Death)
  Sender: FDA-Public Use
  Company Number: None

PATIENT
  Sex: Male

DRUGS (7)
  1. ZOLFRAN [Concomitant]
  2. PREVACID [Concomitant]
     Active Substance: LANSOPRAZOLE
  3. MAG OXIDE [Concomitant]
     Active Substance: MAGNESIUM OXIDE
  4. ETOPOSIDE, 50 MG [Suspect]
     Active Substance: ETOPOSIDE
     Indication: TESTIS CANCER
     Route: 048
     Dates: start: 20160130
  5. CLONAZPEPAM [Concomitant]
  6. OXCARBAZEPIN [Concomitant]
     Active Substance: OXCARBAZEPINE
  7. AMLODIPINE [Concomitant]
     Active Substance: AMLODIPINE BESYLATE

REACTIONS (1)
  - Death [None]
